FAERS Safety Report 7416920-X (Version None)
Quarter: 2011Q2

REPORT INFORMATION
  Report Type: 
  Country: None (occurrence: None)
  Receive Date: 20110415
  Receipt Date: 20110407
  Transmission Date: 20111010
  Serious: Yes (Other)
  Sender: FDA-Public Use
  Company Number: US-JNJFOC-20110404504

PATIENT
  Age: 54 Year
  Sex: Male

DRUGS (6)
  1. ULTRAM [Suspect]
     Indication: ANALGESIC THERAPY
     Route: 048
  2. NUCYNTA [Suspect]
     Indication: ANALGESIC THERAPY
     Route: 048
  3. COUMADIN [Concomitant]
     Indication: ANTICOAGULANT THERAPY
     Route: 065
  4. CARDIAC MEDICATIONS [Concomitant]
     Indication: CHEST PAIN
     Route: 065
  5. BUPRENORPHINE [Suspect]
     Indication: ANALGESIC THERAPY
     Route: 065
  6. MARIJUANA [Concomitant]

REACTIONS (1)
  - ATRIAL FIBRILLATION [None]
